FAERS Safety Report 16961903 (Version 2)
Quarter: 2019Q4

REPORT INFORMATION
  Report Type: Report from Study
  Country: None (occurrence: CO)
  Receive Date: 20191025
  Receipt Date: 20191129
  Transmission Date: 20200122
  Serious: Yes (Hospitalization, Other)
  Sender: FDA-Public Use
  Company Number: CO-ABBVIE-19K-036-2976060-00

PATIENT
  Sex: Male
  Weight: 59 kg

DRUGS (4)
  1. ATORVASTATIN [Concomitant]
     Active Substance: ATORVASTATIN
     Indication: PRODUCT USED FOR UNKNOWN INDICATION
  2. OMEPRAZOLE. [Concomitant]
     Active Substance: OMEPRAZOLE
     Indication: PRODUCT USED FOR UNKNOWN INDICATION
  3. ZEMPLAR [Suspect]
     Active Substance: PARICALCITOL
     Indication: HYPERPARATHYROIDISM SECONDARY
     Dosage: POST DIALYSIS
     Route: 042
     Dates: start: 20150917, end: 20190912
  4. MORPHINE [Concomitant]
     Active Substance: MORPHINE
     Indication: PRODUCT USED FOR UNKNOWN INDICATION

REACTIONS (14)
  - Respiratory distress [Not Recovered/Not Resolved]
  - Coronary artery disease [Not Recovered/Not Resolved]
  - Anaemia [Recovering/Resolving]
  - Myocardial infarction [Not Recovered/Not Resolved]
  - Epistaxis [Not Recovered/Not Resolved]
  - Venous occlusion [Not Recovered/Not Resolved]
  - Fistula [Not Recovered/Not Resolved]
  - Venous thrombosis [Not Recovered/Not Resolved]
  - Pulmonary oedema [Recovering/Resolving]
  - Hepatitis [Recovering/Resolving]
  - Pneumonia [Recovering/Resolving]
  - Hypertension [Recovering/Resolving]
  - Mouth haemorrhage [Not Recovered/Not Resolved]
  - Fatigue [Not Recovered/Not Resolved]

NARRATIVE: CASE EVENT DATE: 2016
